FAERS Safety Report 20119729 (Version 1)
Quarter: 2021Q4

REPORT INFORMATION
  Report Type: Spontaneous
  Country: DE (occurrence: DE)
  Receive Date: 20211126
  Receipt Date: 20211126
  Transmission Date: 20220303
  Serious: Yes (Other)
  Sender: FDA-Public Use
  Company Number: DE-NOVARTISPH-NVSC2021DE268289

PATIENT
  Age: 58 Year
  Sex: Male

DRUGS (3)
  1. PEMETREXED [Suspect]
     Active Substance: PEMETREXED
     Indication: Adenocarcinoma
     Dosage: 1 UNK (UNK, Q3W)
     Route: 065
     Dates: start: 20200327
  2. CARBOPLATIN [Suspect]
     Active Substance: CARBOPLATIN
     Indication: Adenocarcinoma
     Dosage: 1 UNK Q3W (Q3W)
     Route: 065
     Dates: start: 20200327
  3. PEMBROLIZUMAB [Suspect]
     Active Substance: PEMBROLIZUMAB
     Indication: Adenocarcinoma
     Dosage: UNK UNK, Q3W (EVERY 3 WEEKS)
     Route: 065
     Dates: start: 20200327

REACTIONS (3)
  - Neuralgia [Unknown]
  - Malignant neoplasm progression [Unknown]
  - Sacral pain [Unknown]

NARRATIVE: CASE EVENT DATE: 20200416
